FAERS Safety Report 12407437 (Version 1)
Quarter: 2016Q2

REPORT INFORMATION
  Report Type: Spontaneous
  Country: US (occurrence: None)
  Receive Date: 20160525
  Receipt Date: 20160525
  Transmission Date: 20160815
  Serious: No
  Sender: FDA-Public Use
  Company Number: None

PATIENT
  Age: 29 Year
  Sex: Female

DRUGS (1)
  1. STELARA [Suspect]
     Active Substance: USTEKINUMAB
     Indication: PSORIASIS
     Dosage: 90MG/1ML  DAY 1 OF STARTER DOSE  SUBCUTANEOUSLY
     Route: 058
     Dates: start: 20160301, end: 20160325

REACTIONS (2)
  - Dizziness [None]
  - Disorientation [None]

NARRATIVE: CASE EVENT DATE: 20160325
